FAERS Safety Report 16198169 (Version 2)
Quarter: 2019Q2

REPORT INFORMATION
  Report Type: Spontaneous
  Country: FR (occurrence: FR)
  Receive Date: 20190415
  Receipt Date: 20190425
  Transmission Date: 20190711
  Serious: Yes (Other)
  Sender: FDA-Public Use
  Company Number: FR-MYLANLABS-2019M1034590

PATIENT
  Age: 39 Year
  Sex: Female

DRUGS (7)
  1. REVIA [Suspect]
     Active Substance: NALTREXONE HYDROCHLORIDE
     Indication: ALCOHOLISM
     Dosage: 50 MG, QD
     Route: 048
     Dates: end: 20121115
  2. LOXEN                              /00639802/ [Suspect]
     Active Substance: NICARDIPINE HYDROCHLORIDE
     Indication: HYPERTENSION
     Dosage: UNK
     Route: 048
  3. HYDROCHLOROTHIAZIDE/IRBESARTAN [Suspect]
     Active Substance: HYDROCHLOROTHIAZIDE\IRBESARTAN
     Indication: HYPERTENSION
     Dosage: UNK
     Route: 048
     Dates: end: 20121115
  4. TAHOR [Suspect]
     Active Substance: ATORVASTATIN CALCIUM
     Indication: DYSLIPIDAEMIA
     Dosage: 20 MILLIGRAM, QD
     Route: 048
     Dates: end: 20121115
  5. ALCOHOL. [Suspect]
     Active Substance: ALCOHOL
     Indication: PRODUCT USED FOR UNKNOWN INDICATION
     Dosage: UNK
     Route: 065
  6. LYRICA [Suspect]
     Active Substance: PREGABALIN
     Indication: EPILEPSY
     Dosage: 150 MG, BID
     Route: 048
     Dates: end: 20121115
  7. AOTAL [Suspect]
     Active Substance: ACAMPROSATE CALCIUM
     Indication: ALCOHOLISM
     Dosage: 333 MG, QID
     Route: 048

REACTIONS (2)
  - Maternal exposure during pregnancy [Recovered/Resolved]
  - Alcohol poisoning [Unknown]

NARRATIVE: CASE EVENT DATE: 20121015
